FAERS Safety Report 11404054 (Version 1)
Quarter: 2015Q3

REPORT INFORMATION
  Report Type: Spontaneous
  Country: NL (occurrence: ZA)
  Receive Date: 20150821
  Receipt Date: 20150821
  Transmission Date: 20151125
  Serious: Yes (Death)
  Sender: FDA-Public Use
  Company Number: NL-MYLANLABS-2015M1027422

PATIENT

DRUGS (19)
  1. VENLOR [Concomitant]
     Indication: ANTIDEPRESSANT THERAPY
     Dosage: 75 UNK, UNK
  2. CELEBREX [Concomitant]
     Active Substance: CELECOXIB
     Indication: RHEUMATOID ARTHRITIS
     Dosage: 200 MG, UNK
  3. ECOTRIN [Concomitant]
     Active Substance: ASPIRIN
     Indication: ANTICOAGULANT THERAPY
     Dosage: 81 MG, UNK
  4. ELTROXIN [Concomitant]
     Active Substance: LEVOTHYROXINE
     Dosage: 50 UNK, UNK
  5. METHOTREXATE [Concomitant]
     Active Substance: METHOTREXATE
     Indication: NEOPLASM MALIGNANT
     Dosage: UNK
     Dates: start: 201505
  6. OMEPRAZOLE SANDOZ                  /00661201/ [Concomitant]
     Active Substance: OMEPRAZOLE
     Indication: REFLUX GASTRITIS
     Dosage: 20 MG, UNK
     Dates: start: 201504
  7. EPILIZINE [Concomitant]
     Active Substance: VALPROATE SODIUM
     Indication: EPILEPSY
     Dosage: 500 MG, UNK
     Dates: start: 201503
  8. STILPANE                           /01152401/ [Concomitant]
     Indication: ANALGESIC THERAPY
     Dosage: 320 MG, UNK
     Dates: start: 201504
  9. ELTROXIN [Concomitant]
     Active Substance: LEVOTHYROXINE
     Indication: THYROID DISORDER
     Dosage: 100 MG, UNK
  10. SODIUM [Concomitant]
     Active Substance: SODIUM
     Indication: HYPERTENSION
     Dosage: 80 MG, UNK
  11. PLENISH-K [Concomitant]
     Indication: MINERAL SUPPLEMENTATION
     Dosage: 600 MG, UNK
  12. MIRTAZAPINE. [Concomitant]
     Active Substance: MIRTAZAPINE
     Indication: ANTIDEPRESSANT THERAPY
     Dosage: 15 MG, UNK
     Dates: start: 201501
  13. PREDNISONE. [Concomitant]
     Active Substance: PREDNISONE
     Indication: ADRENAL INSUFFICIENCY
     Dosage: 5 MG, UNK
     Dates: start: 201410
  14. FUROSEMIDE. [Suspect]
     Active Substance: FUROSEMIDE
     Indication: DIURETIC THERAPY
     Dosage: 40 MG, UNK
  15. LANOXIN (IGOXINA) [Concomitant]
     Indication: CARDIAC FAILURE CHRONIC
     Dosage: .5 MG, UNK
  16. GLUCOPHAGE LA [Concomitant]
     Indication: DIABETES MELLITUS
     Dosage: 850 MG, UNK
     Dates: start: 201504
  17. ASPEN                              /00002701/ [Concomitant]
     Indication: ANTICOAGULANT THERAPY
     Dosage: ACCORDING TO PI
  18. PURICOS [Concomitant]
     Active Substance: ALLOPURINOL
     Indication: GOUT
     Dosage: 100 MG, UNK
  19. FOLIC ACID. [Concomitant]
     Active Substance: FOLIC ACID
     Indication: VITAMIN SUPPLEMENTATION
     Dosage: 5 MG, UNK

REACTIONS (1)
  - Brain neoplasm [Fatal]
